FAERS Safety Report 22396584 (Version 1)
Quarter: 2023Q2

REPORT INFORMATION
  Report Type: Spontaneous
  Country: US (occurrence: US)
  Receive Date: 20230601
  Receipt Date: 20230601
  Transmission Date: 20230721
  Serious: No
  Sender: FDA-Public Use
  Company Number: US-APIL-2313858US

PATIENT

DRUGS (1)
  1. LUMIGAN [Suspect]
     Active Substance: BIMATOPROST
     Indication: Product used for unknown indication
     Dosage: DAILY

REACTIONS (4)
  - Product package associated injury [Unknown]
  - Product use complaint [Unknown]
  - Product outer packaging issue [Unknown]
  - Product delivery mechanism issue [Unknown]
